FAERS Safety Report 11340849 (Version 4)
Quarter: 2016Q1

REPORT INFORMATION
  Report Type: Spontaneous
  Country: US (occurrence: US)
  Receive Date: 20150805
  Receipt Date: 20160104
  Transmission Date: 20160525
  Serious: Yes (Other)
  Sender: FDA-Public Use
  Company Number: US-PFIZER INC-2015250146

PATIENT
  Age: 70 Year
  Sex: Female

DRUGS (6)
  1. ATORVASTATIN [Concomitant]
     Active Substance: ATORVASTATIN
     Indication: BLOOD CHOLESTEROL INCREASED
     Dosage: 40 MG, DAILY
  2. BISOPROLOL-HCTZ [Concomitant]
     Indication: HYPERTENSION
     Dosage: UNK, DAILY (BISOPROLOL FUMARATE 5MG , HYDROCHLOROTHIAZIDE 6.25MG)
  3. IBRANCE [Suspect]
     Active Substance: PALBOCICLIB
     Indication: BREAST CANCER METASTATIC
     Dosage: 100 MG, UNK
     Dates: start: 20150620, end: 20150731
  4. IBRANCE [Suspect]
     Active Substance: PALBOCICLIB
     Dosage: 100 MG, DAILY
     Dates: start: 20150629
  5. LETROZOLE. [Concomitant]
     Active Substance: LETROZOLE
     Indication: BREAST CANCER
     Dosage: 2.5 MG, DAILY
  6. IBRANCE [Suspect]
     Active Substance: PALBOCICLIB
     Dosage: 75 MG, DAILY
     Route: 048
     Dates: start: 20150922, end: 20151028

REACTIONS (10)
  - Decreased appetite [Unknown]
  - Blood creatinine increased [Not Recovered/Not Resolved]
  - Platelet count decreased [Recovering/Resolving]
  - Neutropenia [Recovered/Resolved]
  - Blood urea increased [Not Recovered/Not Resolved]
  - Thrombocytopenia [Recovered/Resolved]
  - Musculoskeletal pain [Unknown]
  - White blood cell count decreased [Recovering/Resolving]
  - Fatigue [Not Recovered/Not Resolved]
  - Weight decreased [Unknown]

NARRATIVE: CASE EVENT DATE: 2015
